FAERS Safety Report 7560997-8 (Version None)
Quarter: 2011Q2

REPORT INFORMATION
  Report Type: 
  Country: None (occurrence: None)
  Receive Date: 20110621
  Receipt Date: 20101109
  Transmission Date: 20111010
  Serious: No
  Sender: FDA-Public Use
  Company Number: US-ASTRAZENECA-2010SE53648

PATIENT
  Sex: Male

DRUGS (2)
  1. NEXIUM [Suspect]
     Route: 048
  2. ATACAND HCT [Suspect]
     Route: 048

REACTIONS (4)
  - INFECTION [None]
  - DEHYDRATION [None]
  - POLLAKIURIA [None]
  - PROSTATITIS [None]
